FAERS Safety Report 7407685-6 (Version None)
Quarter: 2011Q2

REPORT INFORMATION
  Report Type: 
  Country: None (occurrence: None)
  Receive Date: 20110412
  Receipt Date: 20110107
  Transmission Date: 20111010
  Serious: Yes (Death, Hospitalization)
  Sender: FDA-Public Use
  Company Number: US-BAYER-200942988NA

PATIENT
  Age: 58 Year
  Sex: Female

DRUGS (1)
  1. BETASERON [Suspect]
     Indication: MULTIPLE SCLEROSIS
     Route: 058
     Dates: start: 20090911

REACTIONS (5)
  - TREMOR [None]
  - MULTIPLE SCLEROSIS RELAPSE [None]
  - DISCOMFORT [None]
  - DEATH [None]
  - KNEE ARTHROPLASTY [None]
